FAERS Safety Report 18866141 (Version 1)
Quarter: 2021Q1

REPORT INFORMATION
  Report Type: Spontaneous
  Country: CN (occurrence: CN)
  Receive Date: 20210208
  Receipt Date: 20210208
  Transmission Date: 20210420
  Serious: Yes (Hospitalization, Other)
  Sender: FDA-Public Use
  Company Number: CN-FRESENIUS KABI-FK202101311

PATIENT
  Age: 50 Year
  Sex: Male

DRUGS (1)
  1. DEXAMETHASONE INJECTION (MANUFACTURER UNKNOWN) [Suspect]
     Active Substance: DEXAMETHASONE
     Indication: NEUROPATHY PERIPHERAL
     Route: 042

REACTIONS (4)
  - Encephalitis brain stem [Recovered/Resolved with Sequelae]
  - Condition aggravated [Recovered/Resolved with Sequelae]
  - Listeriosis [Recovered/Resolved with Sequelae]
  - Respiratory failure [Recovered/Resolved with Sequelae]
